FAERS Safety Report 19639862 (Version 1)
Quarter: 2021Q3

REPORT INFORMATION
  Report Type: Spontaneous
  Country: GB (occurrence: GB)
  Receive Date: 20210730
  Receipt Date: 20210730
  Transmission Date: 20211014
  Serious: Yes (Other)
  Sender: FDA-Public Use
  Company Number: GB-MYLANLABS-2021M1045706

PATIENT
  Age: 41 Year
  Sex: Female
  Weight: 70 kg

DRUGS (4)
  1. METRONIDAZOL                       /00012501/ [Concomitant]
     Active Substance: METRONIDAZOLE
     Indication: ILL-DEFINED DISORDER
     Dosage: UNK
  2. CLINDAMYCIN MYLAN [Suspect]
     Active Substance: CLINDAMYCIN
     Indication: TOOTH INFECTION
     Dosage: 150 MILLIGRAM
     Route: 048
     Dates: start: 20210607, end: 20210611
  3. RED CLOVER                         /01428401/ [Concomitant]
     Active Substance: RED CLOVER\DIETARY SUPPLEMENT
     Indication: ILL-DEFINED DISORDER
     Dosage: UNK
  4. CLINDAMYCIN MYLAN [Suspect]
     Active Substance: CLINDAMYCIN
     Indication: IMPLANT SITE INFECTION

REACTIONS (5)
  - Dyspnoea [Recovered/Resolved]
  - Dermatitis allergic [Recovered/Resolved]
  - Chest pain [Recovered/Resolved]
  - Myocardial infarction [Unknown]
  - Palpitations [Recovered/Resolved]

NARRATIVE: CASE EVENT DATE: 20210611
